FAERS Safety Report 8788118 (Version 1)
Quarter: 2012Q4

REPORT INFORMATION
  Report Type: 
  Country: DE (occurrence: DE)
  Receive Date: 20120914
  Receipt Date: 20120914
  Transmission Date: 20130627
  Serious: Yes (Life-Threatening)
  Sender: FDA-Public Use
  Company Number: DE-ROCHE-1116991

PATIENT
  Age: 57 Year
  Sex: Female

DRUGS (21)
  1. DIAZEPAM [Suspect]
     Indication: PRODUCT USED FOR UNKNOWN INDICATION
     Route: 048
     Dates: start: 20111012, end: 20111122
  2. DIAZEPAM [Suspect]
     Route: 048
     Dates: start: 20111123, end: 20111125
  3. DIAZEPAM [Suspect]
     Route: 048
     Dates: start: 20111126, end: 20111129
  4. NEUROCIL [Suspect]
     Indication: PRODUCT USED FOR UNKNOWN INDICATION
     Route: 065
     Dates: start: 20111108, end: 20111116
  5. NEUROCIL [Suspect]
     Route: 048
     Dates: start: 20111117
  6. L-THYROXIN [Suspect]
     Indication: PRODUCT USED FOR UNKNOWN INDICATION
     Route: 048
     Dates: start: 20111117
  7. ORFIRIL [Suspect]
     Indication: PRODUCT USED FOR UNKNOWN INDICATION
     Route: 048
     Dates: start: 20111017, end: 20111101
  8. ORFIRIL [Suspect]
     Route: 048
     Dates: start: 20111102, end: 20111125
  9. ORFIRIL [Suspect]
     Route: 048
     Dates: start: 20111126, end: 20111129
  10. ABILIFY [Suspect]
     Indication: PRODUCT USED FOR UNKNOWN INDICATION
     Route: 048
     Dates: start: 20111011, end: 20111012
  11. ABILIFY [Suspect]
     Route: 048
     Dates: start: 20111013, end: 20111129
  12. CLOZAPINE [Suspect]
     Indication: PRODUCT USED FOR UNKNOWN INDICATION
     Route: 048
     Dates: start: 20111118, end: 20111119
  13. CLOZAPINE [Suspect]
     Route: 048
     Dates: start: 20111120, end: 20111121
  14. CLOZAPINE [Suspect]
     Route: 048
     Dates: start: 20111122, end: 20111123
  15. CLOZAPINE [Suspect]
     Route: 048
     Dates: start: 20111124, end: 20111125
  16. CLOZAPINE [Suspect]
     Route: 048
     Dates: start: 20111126, end: 20111127
  17. CLOZAPINE [Suspect]
     Route: 048
     Dates: start: 20111127, end: 20111129
  18. HALDOL DECANOATE [Suspect]
     Indication: PRODUCT USED FOR UNKNOWN INDICATION
     Route: 065
     Dates: start: 20111125
  19. BISOPROLOL [Concomitant]
     Route: 048
     Dates: start: 2009
  20. LASIX [Concomitant]
     Route: 048
     Dates: start: 2009
  21. CLEXANE [Concomitant]
     Route: 048
     Dates: start: 20111124

REACTIONS (5)
  - Pneumonia [Not Recovered/Not Resolved]
  - Oedema peripheral [None]
  - Blood glucose increased [None]
  - Aspiration [None]
  - Polyneuropathy [None]
